FAERS Safety Report 23130966 (Version 1)
Quarter: 2023Q4

REPORT INFORMATION
  Report Type: Report from Study
  Country: US (occurrence: US)
  Receive Date: 20231031
  Receipt Date: 20231031
  Transmission Date: 20240110
  Serious: Yes (Other)
  Sender: FDA-Public Use
  Company Number: US-ABBVIE-5465561

PATIENT
  Age: 59 Year
  Sex: Female

DRUGS (1)
  1. RINVOQ [Suspect]
     Active Substance: UPADACITINIB
     Indication: Rheumatoid arthritis
     Route: 048
     Dates: start: 20200418

REACTIONS (4)
  - Hepatic fibrosis [Unknown]
  - Diabetes mellitus [Unknown]
  - Muscle spasms [Unknown]
  - Seizure [Unknown]

NARRATIVE: CASE EVENT DATE: 20211024
